FAERS Safety Report 7917504-7 (Version None)
Quarter: 2011Q4

REPORT INFORMATION
  Report Type: 
  Country: None (occurrence: None)
  Receive Date: 20111114
  Receipt Date: 20111028
  Transmission Date: 20120403
  Serious: Yes (Hospitalization)
  Sender: FDA-Public Use
  Company Number: 2010SP060123

PATIENT
  Age: 48 Year
  Sex: Male
  Weight: 65 kg

DRUGS (5)
  1. RIBAVIRIN [Suspect]
     Indication: PRODUCT USED FOR UNKNOWN INDICATION
     Dosage: 400 MG; BID
     Dates: start: 20090903
  2. PEG-INTRON [Suspect]
     Indication: HEPATITIS C
     Dosage: 100 MCG
     Dates: start: 20090903
  3. PEG-INTRON [Suspect]
     Indication: HEPATITIS C
     Dosage: 100 MCG
     Dates: start: 20100701
  4. TRUVADA [Concomitant]
  5. KALETRA [Concomitant]

REACTIONS (4)
  - PRODUCT CONTAMINATION [None]
  - NECROTISING FASCIITIS [None]
  - PRODUCT QUALITY ISSUE [None]
  - INJECTION SITE REACTION [None]
